FAERS Safety Report 4370335-X (Version None)
Quarter: 2004Q2

REPORT INFORMATION
  Report Type: 
  Country: None (occurrence: None)
  Receive Date: 20040603
  Receipt Date: 20040318
  Transmission Date: 20050107
  Serious: Yes (Life-Threatening, Other)
  Sender: FDA-Public Use
  Company Number: US-BRISTOL-MYERS SQUIBB COMPANY-12536249

PATIENT
  Age: 27 Year
  Sex: Female

DRUGS (6)
  1. ABILIFY [Suspect]
     Indication: POST-TRAUMATIC STRESS DISORDER
     Route: 048
     Dates: start: 20031129, end: 20031129
  2. ABILIFY [Suspect]
     Indication: INTENTIONAL SELF-INJURY
     Route: 048
     Dates: start: 20031129, end: 20031129
  3. ZYPREXA [Concomitant]
     Dosage: PRN
  4. CLONIDINE HCL [Concomitant]
     Dosage: PRN
  5. METAMUCIL-2 [Concomitant]
     Dosage: 1/2 TABLESPOON IN AM
  6. TYLENOL [Concomitant]

REACTIONS (4)
  - DIZZINESS [None]
  - GRAND MAL CONVULSION [None]
  - NAUSEA [None]
  - TACHYCARDIA [None]
